FAERS Safety Report 9912998 (Version 2)
Quarter: 2014Q1

REPORT INFORMATION
  Report Type: Spontaneous
  Country: US (occurrence: None)
  Receive Date: 20140214
  Receipt Date: 20140326
  Transmission Date: 20141002
  Serious: Yes (Hospitalization, Disabling)
  Sender: FDA-Public Use
  Company Number: FK201400445

PATIENT
  Age: 60 Year
  Sex: Female
  Weight: 78.46 kg

DRUGS (7)
  1. EPIRUBICIN [Suspect]
     Indication: BREAST CANCER FEMALE
     Route: 051
     Dates: start: 200006, end: 200010
  2. CYCLOPHOSPHAMIDE [Suspect]
     Indication: BREAST CANCER FEMALE
     Route: 051
     Dates: start: 200006, end: 200010
  3. FLUOROURACIL [Suspect]
     Indication: BREAST CANCER FEMALE
     Route: 051
     Dates: start: 200006, end: 200010
  4. ADCAL (CALCIUM CARBONATE) [Concomitant]
  5. FORSTEO (TERIPARATIDE) [Concomitant]
  6. KETAMINE [Concomitant]
  7. OXYCONTIN (OXYCODONE) [Concomitant]

REACTIONS (4)
  - Fracture [None]
  - Spinal fracture [None]
  - Osteopenia [None]
  - Pain [None]
